FAERS Safety Report 20601337 (Version 1)
Quarter: 2022Q1

REPORT INFORMATION
  Report Type: Spontaneous
  Country: IT (occurrence: IT)
  Receive Date: 20220316
  Receipt Date: 20220316
  Transmission Date: 20220424
  Serious: Yes (Hospitalization)
  Sender: FDA-Public Use
  Company Number: IT-MYLANLABS-2022M1019623

PATIENT
  Sex: Female

DRUGS (4)
  1. PREDNISONE [Suspect]
     Active Substance: PREDNISONE
     Indication: Immunosuppressant drug therapy
     Dosage: 2 MILLIGRAM/KILOGRAM, QD (19 DAY COURSE; INITIAL DOSE; STARTED ON DAY 10 OF LIFE)
     Route: 042
  2. ACYCLOVIR [Concomitant]
     Active Substance: ACYCLOVIR
     Indication: Evidence based treatment
     Dosage: UNK
     Route: 065
  3. AZITHROMYCIN [Concomitant]
     Active Substance: AZITHROMYCIN
     Indication: Evidence based treatment
     Dosage: 5 MILLIGRAM/KILOGRAM, QD (5 DAY COURSE; STARTED ON DAY 10 OF LIFE)
     Route: 065
  4. ENOXAPARIN [Concomitant]
     Active Substance: ENOXAPARIN
     Indication: Product used for unknown indication
     Dosage: 2000 INTERNATIONAL UNIT, QD (FROM DAY 23 TO DAY 42 OF LIFE)
     Route: 058

REACTIONS (2)
  - Enterobacter infection [Recovered/Resolved]
  - COVID-19 [Recovered/Resolved]
